FAERS Safety Report 7864156-0 (Version None)
Quarter: 2011Q4

REPORT INFORMATION
  Report Type: 
  Country: None (occurrence: None)
  Receive Date: 20111028
  Receipt Date: 20111026
  Transmission Date: 20120403
  Serious: Yes (Other)
  Sender: FDA-Public Use
  Company Number: US-PFIZER INC-2011261880

PATIENT
  Sex: Female
  Weight: 58.957 kg

DRUGS (8)
  1. GEODON [Suspect]
     Indication: BIPOLAR I DISORDER
     Dosage: 40 MG, 2X/DAY
     Route: 048
     Dates: start: 20080101, end: 20090101
  2. GEODON [Suspect]
     Dosage: 40 MG, 1X/DAY
     Route: 048
     Dates: start: 20090101
  3. SYNTHROID [Concomitant]
     Indication: THYROID DISORDER
     Dosage: 50 MG, UNK
  4. NUVIGIL [Concomitant]
     Indication: DEPRESSION
     Dosage: 250 MG, 3X/DAY
  5. LYRICA [Concomitant]
     Indication: MUSCLE DISORDER
     Dosage: 50 MG, 1X/DAY
  6. SANCTURA XR [Concomitant]
     Dosage: 60 MG, 1X/DAY
  7. LAMICTAL [Concomitant]
     Dosage: 200 MG, 1X/DAY
  8. ELMIRON [Concomitant]
     Dosage: UNK

REACTIONS (3)
  - FATIGUE [None]
  - CYSTITIS INTERSTITIAL [None]
  - DEPRESSION [None]
